FAERS Safety Report 9183531 (Version 1)
Quarter: 2013Q1

REPORT INFORMATION
  Report Type: Spontaneous
  Country: US (occurrence: US)
  Receive Date: 20130322
  Receipt Date: 20130322
  Transmission Date: 20140127
  Serious: No
  Sender: FDA-Public Use
  Company Number: US-BRISTOL-MYERS SQUIBB COMPANY-16443657

PATIENT
  Sex: Male

DRUGS (1)
  1. ERBITUX [Suspect]
     Dosage: RECEIVED 9 TREATMENTS

REACTIONS (1)
  - Rash [Not Recovered/Not Resolved]
